FAERS Safety Report 4417848-X (Version None)
Quarter: 2004Q3

REPORT INFORMATION
  Report Type: 
  Country: None (occurrence: None)
  Receive Date: 20040803
  Receipt Date: 20040720
  Transmission Date: 20050211
  Serious: Yes (Disabling)
  Sender: FDA-Public Use
  Company Number: 2004AP03795

PATIENT
  Age: 70 Year
  Sex: Female

DRUGS (1)
  1. NAROPIN [Suspect]
     Indication: SURGERY
     Dosage: 5 ML DAILY IV
     Route: 042
     Dates: start: 20040707, end: 20040707

REACTIONS (1)
  - MONOPLEGIA [None]
